FAERS Safety Report 17622346 (Version 1)
Quarter: 2020Q2

REPORT INFORMATION
  Report Type: Spontaneous
  Country: US (occurrence: US)
  Receive Date: 20200403
  Receipt Date: 20200403
  Transmission Date: 20200713
  Serious: Yes (Hospitalization)
  Sender: FDA-Public Use
  Company Number: US-JACOBUS PHARMACEUTICAL COMPANY, INC.-2082284

PATIENT
  Age: 72 Year
  Sex: Female

DRUGS (16)
  1. OMEPRAZOLE. [Concomitant]
     Active Substance: OMEPRAZOLE
  2. VITAMIN D [Concomitant]
     Active Substance: VITAMIN D NOS
  3. RIVAROXABAN [Concomitant]
     Active Substance: RIVAROXABAN
  4. AZATHIOPRINE. [Concomitant]
     Active Substance: AZATHIOPRINE
  5. DIGOXIN. [Concomitant]
     Active Substance: DIGOXIN
  6. FUROSEMIDE. [Concomitant]
     Active Substance: FUROSEMIDE
  7. IBANDRONATE SODIUM. [Concomitant]
     Active Substance: IBANDRONATE SODIUM
  8. LEVOTHYROXINE. [Concomitant]
     Active Substance: LEVOTHYROXINE
  9. PYRIDOSTIGMINE BROMIDE. [Concomitant]
     Active Substance: PYRIDOSTIGMINE BROMIDE
  10. VITAMIN C [Concomitant]
     Active Substance: ASCORBIC ACID
  11. ACETIC ACID. [Concomitant]
     Active Substance: ACETIC ACID
  12. ATORVASTATIN CALCIUM. [Concomitant]
     Active Substance: ATORVASTATIN CALCIUM
  13. RUZURGI [Suspect]
     Active Substance: AMIFAMPRIDINE
     Indication: MYASTHENIC SYNDROME
     Route: 048
     Dates: start: 20190916
  14. ASPIRIN. [Concomitant]
     Active Substance: ASPIRIN
  15. CALCIUM [Concomitant]
     Active Substance: CALCIUM
  16. METOPROLOL. [Concomitant]
     Active Substance: METOPROLOL

REACTIONS (2)
  - Cardiac disorder [Unknown]
  - Pneumonia influenzal [Unknown]

NARRATIVE: CASE EVENT DATE: 202003
